FAERS Safety Report 8394383-8 (Version None)
Quarter: 2012Q2

REPORT INFORMATION
  Report Type: 
  Country: None (occurrence: None)
  Receive Date: 20120530
  Receipt Date: 20120523
  Transmission Date: 20120825
  Serious: Yes (Hospitalization)
  Sender: FDA-Public Use
  Company Number: TR-ABBOTT-12P-161-0938762-00

PATIENT
  Age: 36 Year
  Sex: Female
  Weight: 65 kg

DRUGS (2)
  1. SIBUTRAMINE HYDROCHLORIDE MONOHYDRATE [Suspect]
     Indication: WEIGHT CONTROL
  2. LIDA DAI DAI HUA JIAO NANG [Suspect]
     Indication: WEIGHT CONTROL

REACTIONS (6)
  - INSOMNIA [None]
  - TOXICITY TO VARIOUS AGENTS [None]
  - DYSPNOEA [None]
  - ARRHYTHMIA [None]
  - HEADACHE [None]
  - VERTIGO [None]
